FAERS Safety Report 25632064 (Version 3)
Quarter: 2025Q4

REPORT INFORMATION
  Report Type: Report from Study
  Country: JP (occurrence: JP)
  Receive Date: 20250801
  Receipt Date: 20251010
  Transmission Date: 20260118
  Serious: Yes (Other)
  Sender: INSMED
  Company Number: JP-INSMED, INC.-2024-02813-JP

PATIENT
  Age: 59 Year
  Sex: Female
  Weight: 40.4 kg

DRUGS (5)
  1. ARIKAYCE [Suspect]
     Active Substance: AMIKACIN
     Indication: Mycobacterium avium complex infection
     Dosage: UNK, UNK
     Route: 055
     Dates: start: 20230628, end: 20240327
  2. RIFAMPIN [Concomitant]
     Active Substance: RIFAMPIN
     Indication: Mycobacterium avium complex infection
     Dosage: 450 MILLIGRAM/DAY
     Route: 065
     Dates: start: 20131003
  3. AZITHROMYCIN DIHYDRATE [Concomitant]
     Active Substance: AZITHROMYCIN DIHYDRATE
     Indication: Mycobacterium avium complex infection
     Dosage: 250 MILLIGRAM/DAY
     Route: 065
     Dates: start: 20220818
  4. SITAFLOXACIN [Concomitant]
     Active Substance: SITAFLOXACIN
     Indication: Mycobacterium avium complex infection
     Dosage: 100 MILLIGRAM/DAY
     Route: 065
     Dates: start: 20140515
  5. NIPRADILOL [Concomitant]
     Active Substance: NIPRADILOL
     Indication: Product used for unknown indication
     Dosage: 2 DROP/DAY
     Route: 061

REACTIONS (3)
  - Pulmonary toxicity [Recovered/Resolved]
  - C-reactive protein increased [Recovering/Resolving]
  - Drug ineffective [Unknown]

NARRATIVE: CASE EVENT DATE: 20230823
